FAERS Safety Report 17768830 (Version 1)
Quarter: 2020Q2

REPORT INFORMATION
  Report Type: Spontaneous
  Country: FR (occurrence: FR)
  Receive Date: 20200512
  Receipt Date: 20200512
  Transmission Date: 20200714
  Serious: Yes (Other)
  Sender: FDA-Public Use
  Company Number: FR-AUROBINDO-AUR-APL-2020-022479

PATIENT
  Age: 2 Year
  Sex: Female
  Weight: 13 kg

DRUGS (4)
  1. OFLOCET [Suspect]
     Active Substance: OFLOXACIN
     Indication: OTITIS MEDIA ACUTE
     Dosage: 2 DOSAGE FORM, ONCE A DAY
     Route: 001
     Dates: start: 20200325
  2. MEKINIST [Suspect]
     Active Substance: TRAMETINIB DIMETHYL SULFOXIDE
     Indication: OPTIC GLIOMA
     Dosage: 0.35 MILLIGRAM/KILOGRAM, ONCE A DAY
     Route: 048
     Dates: start: 20191213
  3. ECONAZOLE. [Suspect]
     Active Substance: ECONAZOLE NITRATE
     Indication: FUNGAL SKIN INFECTION
     Dosage: UNK
     Route: 003
     Dates: start: 20200306
  4. AMOXICILLIN. [Suspect]
     Active Substance: AMOXICILLIN
     Indication: OTITIS MEDIA ACUTE
     Dosage: 1050 MILLIGRAM, ONCE A DAY
     Route: 048
     Dates: start: 20200325

REACTIONS (1)
  - Stress fracture [Recovering/Resolving]

NARRATIVE: CASE EVENT DATE: 20200407
